FAERS Safety Report 22069653 (Version 1)
Quarter: 2023Q1

REPORT INFORMATION
  Report Type: Spontaneous
  Country: CA (occurrence: CA)
  Receive Date: 20230307
  Receipt Date: 20230307
  Transmission Date: 20230418
  Serious: Yes (Other)
  Sender: FDA-Public Use
  Company Number: CA-PFIZER INC-202300096693

PATIENT
  Age: 79 Year
  Sex: Female

DRUGS (3)
  1. XELJANZ [Suspect]
     Active Substance: TOFACITINIB CITRATE
     Indication: Rheumatoid arthritis
     Dosage: 1 DF
     Route: 048
     Dates: start: 2017
  2. COVID-19 VACCINE [Concomitant]
     Indication: COVID-19 immunisation
     Dosage: DOSE 2, SINGLE
     Dates: start: 2021, end: 2021
  3. COVID-19 VACCINE [Concomitant]
     Dosage: DOSE 1, SINGLE

REACTIONS (3)
  - Abscess limb [Unknown]
  - Spinal fracture [Unknown]
  - Limb injury [Unknown]

NARRATIVE: CASE EVENT DATE: 20210101
